FAERS Safety Report 4326809-0 (Version None)
Quarter: 2004Q1

REPORT INFORMATION
  Report Type: 
  Country: None (occurrence: None)
  Receive Date: 20040330
  Receipt Date: 20040323
  Transmission Date: 20041129
  Serious: Yes (Death, Hospitalization)
  Sender: FDA-Public Use
  Company Number: PHEH2004US03392

PATIENT
  Age: 69 Year
  Sex: Female

DRUGS (1)
  1. ZOMETA [Suspect]
     Indication: METASTASIS
     Dosage: 4 MG EVERY 4 WEEKS
     Route: 042
     Dates: start: 20031205

REACTIONS (4)
  - BLOOD CREATININE INCREASED [None]
  - DEATH [None]
  - RENAL FAILURE [None]
  - SEPSIS [None]
